FAERS Safety Report 8880041 (Version 1)
Quarter: 2012Q4

REPORT INFORMATION
  Report Type: 
  Country: US (occurrence: US)
  Receive Date: 20121031
  Receipt Date: 20121031
  Transmission Date: 20130627
  Serious: Yes (Death, Other)
  Sender: FDA-Public Use
  Company Number: US-ROCHE-1123351

PATIENT
  Sex: Female
  Weight: 59.47 kg

DRUGS (18)
  1. HERCEPTIN [Suspect]
     Indication: LUNG NEOPLASM MALIGNANT
     Route: 065
     Dates: start: 20000120
  2. HERCEPTIN [Suspect]
     Route: 065
     Dates: start: 20000127
  3. HERCEPTIN [Suspect]
     Route: 065
     Dates: start: 20000203
  4. HERCEPTIN [Suspect]
     Route: 065
     Dates: start: 20000113
  5. NAVELBINE [Concomitant]
     Route: 065
     Dates: start: 19991230
  6. NAVELBINE [Concomitant]
     Route: 065
     Dates: start: 20000131
  7. GEMZAR [Concomitant]
     Route: 065
     Dates: start: 20000203
  8. CEFTIN [Concomitant]
  9. MEGACE [Concomitant]
     Dosage: 1 cc
     Route: 065
  10. OXYGEN [Concomitant]
  11. PROCRIT [Concomitant]
     Route: 065
     Dates: start: 20000217
  12. TAXOL [Concomitant]
     Route: 065
     Dates: start: 20000408
  13. TAXOL [Concomitant]
     Route: 065
     Dates: start: 20000630
  14. CARBOPLATIN [Concomitant]
     Route: 065
     Dates: start: 20000408
  15. CARBOPLATIN [Concomitant]
     Route: 065
     Dates: start: 20000630
  16. RBC^S [Concomitant]
     Route: 065
     Dates: start: 20000217
  17. PLATELET PACK [Concomitant]
     Dosage: 6 pack
     Route: 065
  18. DECADRON [Concomitant]

REACTIONS (5)
  - Death [Fatal]
  - Neoplasm [Unknown]
  - Neoplasm [Unknown]
  - Chest pain [Unknown]
  - Pain in extremity [Unknown]
